FAERS Safety Report 4983721-1 (Version None)
Quarter: 2006Q2

REPORT INFORMATION
  Report Type: 
  Country: None (occurrence: None)
  Receive Date: 20060426
  Receipt Date: 20060420
  Transmission Date: 20061013
  Serious: Yes (Hospitalization)
  Sender: FDA-Public Use
  Company Number: US-BOEHRINGER INGELHEIM PHARMACEUTICALS, INC.-2006-BP-04556BP

PATIENT
  Sex: Female

DRUGS (7)
  1. ATROVENT HFA [Suspect]
     Indication: CHRONIC OBSTRUCTIVE PULMONARY DISEASE
     Route: 055
  2. ATROVENT HFA [Suspect]
     Indication: EMPHYSEMA
  3. ATROVENT HFA [Suspect]
     Indication: ASTHMA
  4. ALBUTEROL SULFATE AUTOHALER [Concomitant]
     Indication: CHRONIC OBSTRUCTIVE PULMONARY DISEASE
     Route: 055
  5. ALBUTEROL SULFATE AUTOHALER [Concomitant]
     Indication: EMPHYSEMA
  6. FLOVENT [Concomitant]
     Indication: CHRONIC OBSTRUCTIVE PULMONARY DISEASE
     Route: 055
  7. FLOVENT [Concomitant]
     Indication: EMPHYSEMA

REACTIONS (1)
  - PNEUMONIA [None]
